FAERS Safety Report 19082026 (Version 1)
Quarter: 2021Q2

REPORT INFORMATION
  Report Type: Spontaneous
  Country: ZA (occurrence: ZA)
  Receive Date: 20210401
  Receipt Date: 20210401
  Transmission Date: 20210717
  Serious: Yes (Death, Other)
  Sender: FDA-Public Use
  Company Number: ZA-LUPIN PHARMACEUTICALS INC.-2021-03854

PATIENT
  Sex: Female

DRUGS (8)
  1. CARZIN XL [Suspect]
     Active Substance: DOXAZOSIN MESYLATE
     Indication: BLADDER DISORDER
     Dosage: 4 MILLIGRAM, UNK
     Route: 048
     Dates: end: 202103
  2. VESICARE [Suspect]
     Active Substance: SOLIFENACIN SUCCINATE
     Indication: BLADDER DISORDER
     Dosage: 10 MILLIGRAM, UNK
     Route: 048
     Dates: end: 202103
  3. DIAGLUCIDE [Suspect]
     Active Substance: GLICLAZIDE
     Indication: DIABETES MELLITUS
     Dosage: 60 MILLIGRAM, UNK
     Route: 048
     Dates: end: 202103
  4. ASPAVOR [Suspect]
     Active Substance: ATORVASTATIN
     Indication: BLOOD CHOLESTEROL ABNORMAL
     Dosage: 20 MILLIGRAM, UNK
     Route: 048
     Dates: end: 202103
  5. METFORMIN [Suspect]
     Active Substance: METFORMIN HYDROCHLORIDE
     Indication: DIABETES MELLITUS
     Dosage: 850 MILLIGRAM, UNK
     Route: 048
     Dates: end: 202103
  6. HUMULINE (INSULIN HUMAN\INSULIN HUMAN INJECTION, ISOPHANE) [Suspect]
     Active Substance: INSULIN HUMAN
     Indication: BLOOD INSULIN ABNORMAL
     Dosage: 30/70 UNIT, UNK
     Route: 065
     Dates: end: 202103
  7. ECOTRIN [Suspect]
     Active Substance: ASPIRIN
     Indication: ANTICOAGULANT THERAPY
     Dosage: 81 MILLIGRAM, UNK
     Route: 048
     Dates: end: 202103
  8. LISORETIC TABLET [Suspect]
     Active Substance: HYDROCHLOROTHIAZIDE\LISINOPRIL
     Indication: HYPERTENSION
     Dosage: 20/12.5 MG, UNK
     Route: 048
     Dates: end: 202103

REACTIONS (2)
  - Pneumothorax [Fatal]
  - Dyspnoea [Fatal]
